FAERS Safety Report 5224778-2 (Version None)
Quarter: 2007Q1

REPORT INFORMATION
  Report Type: 
  Country: None (occurrence: None)
  Receive Date: 20070131
  Receipt Date: 20070122
  Transmission Date: 20070707
  Serious: Yes (Other)
  Sender: FDA-Public Use
  Company Number: PT-JNJFOC-20070105156

PATIENT
  Sex: Male

DRUGS (2)
  1. TAVANIC [Suspect]
     Indication: DRUG USE FOR UNKNOWN INDICATION
     Route: 048
     Dates: start: 20061214, end: 20061215
  2. AMBROXOL HYDROCHLORIDE [Concomitant]
     Indication: COUGH
     Route: 048

REACTIONS (2)
  - HEADACHE [None]
  - POLLAKIURIA [None]
